FAERS Safety Report 4283708-0 (Version None)
Quarter: 2004Q1

REPORT INFORMATION
  Report Type: 
  Country: None (occurrence: None)
  Receive Date: 20040202
  Receipt Date: 20040115
  Transmission Date: 20041129
  Serious: Yes (Hospitalization, Other)
  Sender: FDA-Public Use
  Company Number: WAES 0401USA01185

PATIENT
  Age: 85 Year
  Sex: Female

DRUGS (13)
  1. ALBUTEROL [Concomitant]
     Dates: start: 20030926
  2. ASPIRIN [Concomitant]
     Route: 048
     Dates: start: 20030923
  3. NEPRO SPECIALIZED LIQUID NUTRITION [Concomitant]
     Route: 048
     Dates: start: 20031023
  4. PLAVIX [Concomitant]
     Route: 048
     Dates: start: 20030923
  5. LASIX [Concomitant]
     Route: 048
     Dates: start: 20031001
  6. LASIX [Concomitant]
     Route: 048
  7. MICRONASE [Concomitant]
     Route: 048
     Dates: start: 20030923
  8. HUMULIN R [Concomitant]
     Route: 058
     Dates: start: 20030923
  9. IMDUR [Concomitant]
     Route: 048
     Dates: start: 20030923
  10. LEVOTHROID [Concomitant]
     Route: 048
     Dates: start: 20030923
  11. TOPROL-XL [Concomitant]
     Indication: HYPERTENSION
     Route: 048
     Dates: start: 20030923
  12. NITROGLYCERIN [Concomitant]
     Indication: CHEST PAIN
     Route: 060
     Dates: start: 20030923
  13. ZOCOR [Suspect]
     Indication: HYPERCHOLESTEROLAEMIA
     Route: 048
     Dates: start: 20030923

REACTIONS (9)
  - ARRHYTHMIA [None]
  - CARDIAC FAILURE CONGESTIVE [None]
  - CORONARY ARTERY DISEASE [None]
  - HEMIPARESIS [None]
  - LOBAR PNEUMONIA [None]
  - OEDEMA PERIPHERAL [None]
  - RALES [None]
  - RASH [None]
  - RHABDOMYOLYSIS [None]
